FAERS Safety Report 17447707 (Version 1)
Quarter: 2020Q1

REPORT INFORMATION
  Report Type: Spontaneous
  Country: CN (occurrence: CN)
  Receive Date: 20200221
  Receipt Date: 20200221
  Transmission Date: 20200409
  Serious: Yes (Hospitalization)
  Sender: FDA-Public Use
  Company Number: CN-ELI_LILLY_AND_COMPANY-CN202002005461

PATIENT
  Age: 75 Year
  Sex: Female
  Weight: 51.3 kg

DRUGS (3)
  1. HUMULIN 70/30 [Suspect]
     Active Substance: INSULIN HUMAN
     Indication: DIABETES MELLITUS
     Dosage: UNK, TID
     Route: 058
     Dates: start: 2010
  2. HUMULIN 70/30 [Suspect]
     Active Substance: INSULIN HUMAN
     Dosage: UNK, QOD
     Route: 058
     Dates: start: 2010
  3. NOVONORM [Concomitant]
     Active Substance: REPAGLINIDE
     Indication: DIABETES MELLITUS
     Route: 048

REACTIONS (12)
  - Vision blurred [Unknown]
  - Pain in extremity [Unknown]
  - Blood glucose increased [Unknown]
  - Vitreous opacities [Unknown]
  - Diabetic complication [Unknown]
  - Back pain [Unknown]
  - Blood glucose abnormal [Unknown]
  - Device physical property issue [Unknown]
  - Hypoaesthesia [Unknown]
  - Arthralgia [Unknown]
  - Product dose omission [Unknown]
  - Cataract [Unknown]
